FAERS Safety Report 9729724 (Version 2)
Quarter: 2015Q3

REPORT INFORMATION
  Report Type: Spontaneous
  Country: US (occurrence: US)
  Receive Date: 20131204
  Receipt Date: 20150804
  Transmission Date: 20151125
  Serious: No
  Sender: FDA-Public Use
  Company Number: US-GILEAD-2009-0021778

PATIENT
  Age: 68 Year
  Sex: Female
  Weight: 120.9 kg

DRUGS (7)
  1. COUMADIN [Concomitant]
     Active Substance: WARFARIN SODIUM
  2. METOLAZONE. [Concomitant]
     Active Substance: METOLAZONE
  3. LASIX [Concomitant]
     Active Substance: FUROSEMIDE
  4. BISOPRL/HCTZ [Concomitant]
  5. CALCIUM TAB + D [Concomitant]
  6. DIOVAN [Concomitant]
     Active Substance: VALSARTAN
  7. LETAIRIS [Suspect]
     Active Substance: AMBRISENTAN
     Indication: PULMONARY ARTERIAL HYPERTENSION
     Route: 048
     Dates: start: 20090430, end: 20090504

REACTIONS (2)
  - Dyspnoea [Unknown]
  - Feeling abnormal [Unknown]

NARRATIVE: CASE EVENT DATE: 20090501
